FAERS Safety Report 6791368-X (Version None)
Quarter: 2010Q2

REPORT INFORMATION
  Report Type: 
  Country: None (occurrence: None)
  Receive Date: 20100621
  Receipt Date: 20100615
  Transmission Date: 20101027
  Serious: Yes (Other)
  Sender: FDA-Public Use
  Company Number: 2010SP021890

PATIENT
  Age: 7 Month
  Sex: Male
  Weight: 5.96 kg

DRUGS (4)
  1. NASONEX [Suspect]
     Indication: UPPER AIRWAY OBSTRUCTION
     Dosage: 1 DF; QD; NAS
     Route: 045
     Dates: start: 20091001
  2. NEXIUM [Concomitant]
  3. UVESTEROL [Concomitant]
  4. LACTOBACILLUS REUTERI [Concomitant]

REACTIONS (1)
  - GLAUCOMA [None]
